FAERS Safety Report 10703712 (Version 1)
Quarter: 2015Q1

REPORT INFORMATION
  Report Type: Spontaneous
  Country: CA (occurrence: None)
  Receive Date: 20150108
  Receipt Date: 20150108
  Transmission Date: 20150721
  Serious: Yes (Other)
  Sender: FDA-Public Use
  Company Number: CA-2014VAL000695

PATIENT
  Age: 24 Year
  Sex: Female

DRUGS (4)
  1. LIDOCAINE (LIDOCAINE) [Suspect]
     Active Substance: LIDOCAINE
     Indication: VENTRICULAR TACHYCARDIA
     Route: 042
  2. MAGNESIUM SULFATE (MAGNESIUM SULFATE) (MAGNESIUM SULFATE) [Suspect]
     Active Substance: MAGNESIUM SULFATE
     Indication: VENTRICULAR TACHYCARDIA
     Route: 042
  3. SALBUTAMOL (SALBUTAMOL) [Suspect]
     Active Substance: ALBUTEROL
     Indication: ASTHMA
     Dosage: 2.5 MG, SINGLE, NEBULIZED
     Route: 055
  4. METOPROLOL TARTRATE (METOPROLOL TARTRATE) UNKNOWN [Suspect]
     Active Substance: METOPROLOL TARTRATE
     Indication: VENTRICULAR TACHYCARDIA
     Route: 048

REACTIONS (5)
  - Bundle branch block left [None]
  - Premature labour [None]
  - Exposure during pregnancy [None]
  - Ventricular extrasystoles [None]
  - Ventricular tachycardia [None]
